FAERS Safety Report 10714397 (Version 3)
Quarter: 2015Q2

REPORT INFORMATION
  Report Type: Report from Study
  Country: BR (occurrence: BR)
  Receive Date: 20150115
  Receipt Date: 20150415
  Transmission Date: 20150821
  Serious: Yes (Other)
  Sender: FDA-Public Use
  Company Number: PHHY2014BR170209

PATIENT
  Sex: Female
  Weight: 96 kg

DRUGS (1)
  1. DIOVAN HCT [Suspect]
     Active Substance: HYDROCHLOROTHIAZIDE\VALSARTAN
     Indication: HYPERTENSION
     Dosage: 1 DF, QD (THE MORNING)
     Route: 048
     Dates: end: 20141230

REACTIONS (5)
  - Nail pigmentation [Not Recovered/Not Resolved]
  - Kidney small [Not Recovered/Not Resolved]
  - Renal failure [Not Recovered/Not Resolved]
  - Onychoclasis [Not Recovered/Not Resolved]
  - Single functional kidney [Not Recovered/Not Resolved]

NARRATIVE: CASE EVENT DATE: 2011
